FAERS Safety Report 18868842 (Version 2)
Quarter: 2021Q2

REPORT INFORMATION
  Report Type: Spontaneous
  Country: US (occurrence: US)
  Receive Date: 20210209
  Receipt Date: 20210422
  Transmission Date: 20210717
  Serious: Yes (Other)
  Sender: FDA-Public Use
  Company Number: US-ASTRAZENECA-2021A039193

PATIENT

DRUGS (5)
  1. PRILOSEC OTC [Suspect]
     Active Substance: OMEPRAZOLE MAGNESIUM
     Route: 048
     Dates: start: 2011, end: 2014
  2. OMEPRAZOLE. [Suspect]
     Active Substance: OMEPRAZOLE
     Indication: PRODUCT USED FOR UNKNOWN INDICATION
     Dosage: GENERIC 40 MG, QD
     Route: 065
     Dates: start: 2012, end: 2014
  3. PREVACID 24 HR [Suspect]
     Active Substance: LANSOPRAZOLE
     Route: 065
     Dates: start: 2011, end: 2012
  4. NEXIUM [Suspect]
     Active Substance: ESOMEPRAZOLE MAGNESIUM
     Indication: PRODUCT USED FOR UNKNOWN INDICATION
     Dosage: 22.3 MG, QD
     Route: 048
  5. NEXIUM 24HR [Suspect]
     Active Substance: ESOMEPRAZOLE MAGNESIUM
     Indication: PRODUCT USED FOR UNKNOWN INDICATION
     Dosage: 22.3 MG, QD
     Route: 048
     Dates: start: 2014

REACTIONS (9)
  - Gastric cancer [Unknown]
  - Rebound effect [Unknown]
  - Retroperitoneal lymphadenopathy [Unknown]
  - Hyperchlorhydria [Unknown]
  - Chronic lymphocytic leukaemia [Unknown]
  - Abdominal lymphadenopathy [Unknown]
  - Follicular lymphoma [Unknown]
  - Nodal marginal zone B-cell lymphoma stage IV [Unknown]
  - Lymphocytosis [Unknown]

NARRATIVE: CASE EVENT DATE: 20150921
